FAERS Safety Report 17472577 (Version 2)
Quarter: 2020Q1

REPORT INFORMATION
  Report Type: Spontaneous
  Country: US (occurrence: US)
  Receive Date: 20200228
  Receipt Date: 20200319
  Transmission Date: 20200409
  Serious: No
  Sender: FDA-Public Use
  Company Number: US-MYLANLABS-2020M1019082

PATIENT
  Age: 40 Year
  Sex: Female
  Weight: 52.16 kg

DRUGS (2)
  1. GLATIRAMER ACETATE INJECTION [Suspect]
     Active Substance: GLATIRAMER ACETATE
     Indication: MULTIPLE SCLEROSIS
     Dosage: UNK UNK, 3XW (ALMOST EVERY OTHER DAY)
     Dates: start: 20200120
  2. METRONIDAZOLE. [Concomitant]
     Active Substance: METRONIDAZOLE
     Dosage: UNK

REACTIONS (8)
  - Nervousness [Recovering/Resolving]
  - Tachypnoea [Recovering/Resolving]
  - Nausea [Recovering/Resolving]
  - Palpitations [Recovering/Resolving]
  - Sensation of foreign body [Recovering/Resolving]
  - Lip swelling [Recovering/Resolving]
  - Throat tightness [Recovering/Resolving]
  - Paraesthesia [Recovering/Resolving]

NARRATIVE: CASE EVENT DATE: 20200120
